FAERS Safety Report 11138968 (Version 1)
Quarter: 2015Q2

REPORT INFORMATION
  Report Type: Spontaneous
  Country: US (occurrence: US)
  Receive Date: 20150527
  Receipt Date: 20150527
  Transmission Date: 20150821
  Serious: Yes (Other)
  Sender: FDA-Public Use
  Company Number: US-JNJFOC-20150511824

PATIENT
  Age: 53 Year
  Sex: Male

DRUGS (2)
  1. INTELENCE [Suspect]
     Active Substance: ETRAVIRINE
     Indication: HIV TEST POSITIVE
     Route: 048
     Dates: start: 200805
  2. INTELENCE [Suspect]
     Active Substance: ETRAVIRINE
     Indication: HIV TEST POSITIVE
     Route: 048
     Dates: start: 20150513, end: 20150516

REACTIONS (7)
  - Dyspnoea [Recovered/Resolved]
  - Foreign body [Recovered/Resolved]
  - Product physical issue [Unknown]
  - Loss of consciousness [Recovered/Resolved]
  - Product formulation issue [Unknown]
  - Product size issue [Unknown]
  - Product coating issue [Unknown]

NARRATIVE: CASE EVENT DATE: 20150513
